FAERS Safety Report 13994219 (Version 1)
Quarter: 2017Q3

REPORT INFORMATION
  Report Type: Report from Study
  Country: None (occurrence: US)
  Receive Date: 20170920
  Receipt Date: 20170920
  Transmission Date: 20171128
  Serious: Yes (Hospitalization)
  Sender: FDA-Public Use
  Company Number: US-VIFOR (INTERNATIONAL) INC.-VIT-2017-09520

PATIENT
  Age: 71 Year
  Sex: Female

DRUGS (8)
  1. VELTASSA [Suspect]
     Active Substance: PATIROMER
     Route: 048
  2. OXYBUTYNIN [Concomitant]
     Active Substance: OXYBUTYNIN
  3. DIVALPROEX [Concomitant]
     Active Substance: DIVALPROEX SODIUM
  4. OMEPRAZOLE. [Concomitant]
     Active Substance: OMEPRAZOLE
  5. VELTASSA [Suspect]
     Active Substance: PATIROMER
     Indication: HYPERKALAEMIA
     Route: 048
     Dates: start: 20170228, end: 2017
  6. RESTASIS [Concomitant]
     Active Substance: CYCLOSPORINE
  7. LUMIGAN [Concomitant]
     Active Substance: BIMATOPROST
  8. TIMOLOL MALEATE~~BRIMONIDINE TARTRATE [Concomitant]

REACTIONS (2)
  - Seizure [Not Recovered/Not Resolved]
  - Drug dose omission [Unknown]

NARRATIVE: CASE EVENT DATE: 2017
